FAERS Safety Report 9386883 (Version 1)
Quarter: 2013Q3

REPORT INFORMATION
  Report Type: Spontaneous
  Country: US (occurrence: US)
  Receive Date: 20130708
  Receipt Date: 20130708
  Transmission Date: 20140515
  Serious: Yes (Other)
  Sender: FDA-Public Use
  Company Number: US-ASTRAZENECA-2013SE46893

PATIENT
  Age: 64 Year
  Sex: Female
  Weight: 70.3 kg

DRUGS (13)
  1. NEXIUM [Suspect]
     Indication: GASTROOESOPHAGEAL REFLUX DISEASE
     Route: 048
     Dates: start: 2003
  2. NEXIUM [Suspect]
     Indication: ULCER
     Route: 048
     Dates: start: 2003
  3. NEXIUM [Suspect]
     Indication: GASTROOESOPHAGEAL REFLUX DISEASE
     Route: 048
     Dates: start: 2008
  4. NEXIUM [Suspect]
     Indication: ULCER
     Route: 048
     Dates: start: 2008
  5. NEXIUM [Suspect]
     Indication: GASTROOESOPHAGEAL REFLUX DISEASE
     Route: 048
     Dates: start: 201303
  6. NEXIUM [Suspect]
     Indication: ULCER
     Route: 048
     Dates: start: 201303
  7. NEXIUM [Suspect]
     Indication: GASTROOESOPHAGEAL REFLUX DISEASE
     Route: 048
     Dates: start: 201303
  8. NEXIUM [Suspect]
     Indication: ULCER
     Route: 048
     Dates: start: 201303
  9. PRILOSEC DELAYED-RELEASE CAPSULES [Suspect]
     Indication: GASTROOESOPHAGEAL REFLUX DISEASE
     Route: 048
     Dates: start: 201203, end: 201209
  10. PRILOSEC DELAYED-RELEASE CAPSULES [Suspect]
     Indication: GASTRIC ULCER
     Route: 048
     Dates: start: 201203, end: 201209
  11. ADVAIR [Concomitant]
     Indication: ASTHMA
     Dosage: 250/50 MG DAILY
  12. FLONASE [Concomitant]
     Indication: ASTHMA
     Dosage: 50 MG
  13. ZANTAC [Concomitant]
     Indication: ULCER
     Dates: start: 201303

REACTIONS (21)
  - Oesophageal perforation [Unknown]
  - Osteoporosis [Unknown]
  - Poor quality sleep [Unknown]
  - Cataract [Unknown]
  - Polyarthritis [Unknown]
  - Gait disturbance [Unknown]
  - Sinusitis [Unknown]
  - Dysphagia [Unknown]
  - Weight decreased [Unknown]
  - Weight increased [Unknown]
  - Hernia [Unknown]
  - Diverticulitis [Unknown]
  - Oesophageal ulcer [Unknown]
  - Oesophageal stenosis [Unknown]
  - Fall [Unknown]
  - Vomiting [Unknown]
  - Intentional drug misuse [Unknown]
  - Intentional drug misuse [Unknown]
  - Drug ineffective [Unknown]
  - Drug prescribing error [Unknown]
  - Drug dose omission [Unknown]
